FAERS Safety Report 8572671-X (Version None)
Quarter: 2012Q3

REPORT INFORMATION
  Report Type: 
  Country: None (occurrence: None)
  Receive Date: 20120806
  Receipt Date: 20120723
  Transmission Date: 20120928
  Serious: Yes (Hospitalization)
  Sender: FDA-Public Use
  Company Number: CH-ASTRAZENECA-2012SE51642

PATIENT
  Sex: Male

DRUGS (3)
  1. SEROQUEL [Suspect]
     Route: 048
  2. ZESTRIL [Concomitant]
     Route: 048
  3. VALPROATE SODIUM [Concomitant]
     Route: 048

REACTIONS (1)
  - PAINFUL ERECTION [None]
